FAERS Safety Report 11924463 (Version 1)
Quarter: 2016Q1

REPORT INFORMATION
  Report Type: Spontaneous
  Country: US (occurrence: US)
  Receive Date: 20160118
  Receipt Date: 20160118
  Transmission Date: 20160526
  Serious: No
  Sender: FDA-Public Use
  Company Number: US-ASTRAZENECA-2016SE02142

PATIENT
  Age: 17599 Day
  Sex: Female
  Weight: 131.5 kg

DRUGS (2)
  1. METFORMIN [Concomitant]
     Active Substance: METFORMIN HYDROCHLORIDE
     Indication: TYPE 2 DIABETES MELLITUS
  2. BYDUREON [Suspect]
     Active Substance: EXENATIDE
     Indication: TYPE 2 DIABETES MELLITUS
     Route: 058

REACTIONS (6)
  - Injection site nodule [Unknown]
  - Injection site pain [Unknown]
  - Injection site discolouration [Unknown]
  - Underdose [Unknown]
  - Vision blurred [Unknown]
  - Product quality issue [Unknown]

NARRATIVE: CASE EVENT DATE: 20160106
